FAERS Safety Report 5769334-2 (Version None)
Quarter: 2008Q2

REPORT INFORMATION
  Report Type: 
  Country: None (occurrence: None)
  Receive Date: 20080610
  Receipt Date: 20080529
  Transmission Date: 20081010
  Serious: Yes (Other)
  Sender: FDA-Public Use
  Company Number: 163-21880-08060052

PATIENT
  Age: 72 Year
  Sex: Female

DRUGS (14)
  1. REVLIMID [Suspect]
     Indication: MULTIPLE MYELOMA
     Dosage: DAILY X21 DAYS ONE WEEK OFF, ORAL
     Route: 048
     Dates: start: 20071011, end: 20071015
  2. EVOXAC [Concomitant]
  3. LUMIGAN [Concomitant]
  4. COLACE (DOCUSATE SODIUM) [Concomitant]
  5. HYZAAR [Concomitant]
  6. ASPIRIN [Concomitant]
  7. ARANESP [Concomitant]
  8. ZOMETA [Concomitant]
  9. POTASSIUM CHLORIDE [Concomitant]
  10. PRILOSEC [Concomitant]
  11. ACYCLOVIR [Concomitant]
  12. ACETAMINOPHEN [Concomitant]
  13. DECADRON [Concomitant]
  14. CYMBALTA [Concomitant]

REACTIONS (2)
  - RASH [None]
  - URTICARIA [None]
